FAERS Safety Report 7369298-4 (Version None)
Quarter: 2011Q1

REPORT INFORMATION
  Report Type: 
  Country: None (occurrence: None)
  Receive Date: 20110323
  Receipt Date: 20110316
  Transmission Date: 20110831
  Serious: Yes (Death)
  Sender: FDA-Public Use
  Company Number: B0697761A

PATIENT
  Sex: Female

DRUGS (10)
  1. LAPATINIB [Suspect]
     Indication: METASTATIC SQUAMOUS CELL CARCINOMA
     Dosage: 123750MG CUMULATIVE DOSE
     Route: 048
     Dates: start: 20100928, end: 20110104
  2. DOCETAXEL [Suspect]
     Indication: METASTATIC SQUAMOUS CELL CARCINOMA
     Dosage: 686MG CUMULATIVE DOSE
     Route: 042
     Dates: start: 20100928, end: 20101223
  3. TEMAZEPAM [Concomitant]
     Dosage: 10MG PER DAY
     Dates: start: 20110105, end: 20110128
  4. ROCALTROL [Concomitant]
     Dosage: .25UG TWICE PER DAY
     Dates: start: 20110105, end: 20110128
  5. ACETYLCYSTEINE [Concomitant]
     Dosage: 600MG THREE TIMES PER DAY
     Dates: start: 20101201, end: 20110128
  6. LORAZEPAM [Concomitant]
     Dosage: 1MG PER DAY
     Dates: start: 20110105, end: 20110128
  7. PARACETAMOL [Concomitant]
     Dosage: 1G FOUR TIMES PER DAY
     Dates: start: 20110105, end: 20110128
  8. CALCI CHEW [Concomitant]
     Dates: start: 20101007, end: 20110128
  9. EMOVATE CREME [Concomitant]
     Dates: start: 20110105, end: 20110128
  10. MAALOX FORTE [Concomitant]
     Dosage: 10ML FOUR TIMES PER DAY
     Dates: start: 20110105, end: 20110128

REACTIONS (1)
  - DEATH [None]
